FAERS Safety Report 7154483-7 (Version None)
Quarter: 2010Q4

REPORT INFORMATION
  Report Type: 
  Country: None (occurrence: None)
  Receive Date: 20101213
  Receipt Date: 20101203
  Transmission Date: 20110411
  Serious: Yes (Other)
  Sender: FDA-Public Use
  Company Number: PE-BRISTOL-MYERS SQUIBB COMPANY-15425309

PATIENT

DRUGS (2)
  1. IXEMPRA KIT [Suspect]
  2. CAPECITABINE [Suspect]

REACTIONS (2)
  - PAIN [None]
  - ULCER [None]
